FAERS Safety Report 8696930 (Version 2)
Quarter: 2013Q2

REPORT INFORMATION
  Report Type: Report from Study
  Country: US (occurrence: US)
  Receive Date: 20120801
  Receipt Date: 20130516
  Transmission Date: 20140414
  Serious: Yes (Other)
  Sender: FDA-Public Use
  Company Number: PHHO2012US011181

PATIENT
  Sex: Female
  Weight: 70.3 kg

DRUGS (4)
  1. ZOLEDRONATE [Suspect]
     Indication: BREAST CANCER
     Dosage: 4 MG, MONTHLY X 6 DOSES
     Route: 042
     Dates: start: 20081017, end: 20090306
  2. ZOLEDRONATE [Suspect]
     Dosage: 4 MG, EVERY 3 MONTHS X 9 DOSES
     Route: 042
     Dates: start: 20090529, end: 20110401
  3. CALCIUM [Concomitant]
  4. VITAMIN D [Concomitant]

REACTIONS (1)
  - Osteonecrosis of jaw [Unknown]
